FAERS Safety Report 9236784 (Version 1)
Quarter: 2013Q2

REPORT INFORMATION
  Report Type: Spontaneous
  Country: FR (occurrence: FR)
  Receive Date: 20130417
  Receipt Date: 20130417
  Transmission Date: 20140414
  Serious: Yes (Hospitalization)
  Sender: FDA-Public Use
  Company Number: FR-SANOFI-AVENTIS-2013SA038176

PATIENT
  Age: 86 Year
  Sex: Female

DRUGS (6)
  1. STILNOX [Suspect]
     Indication: PRODUCT USED FOR UNKNOWN INDICATION
     Route: 048
     Dates: end: 20120418
  2. MIRTAZAPINE [Suspect]
     Indication: PRODUCT USED FOR UNKNOWN INDICATION
     Route: 048
  3. LIPANTHYL [Suspect]
     Indication: PRODUCT USED FOR UNKNOWN INDICATION
     Route: 048
     Dates: end: 20120418
  4. LEVOTHYROX [Concomitant]
     Route: 048
  5. INEXIUM [Concomitant]
     Route: 048
  6. TOPAAL [Concomitant]
     Route: 048
     Dates: end: 20120418

REACTIONS (4)
  - Rhabdomyolysis [Recovering/Resolving]
  - Fall [Recovered/Resolved]
  - Back pain [Recovered/Resolved]
  - Ecchymosis [Recovered/Resolved]
